FAERS Safety Report 14486637 (Version 1)
Quarter: 2018Q1

REPORT INFORMATION
  Report Type: Spontaneous
  Country: US (occurrence: US)
  Receive Date: 20180204
  Receipt Date: 20180204
  Transmission Date: 20180509
  Serious: Yes (Other)
  Sender: FDA-Public Use
  Company Number: None

PATIENT
  Age: 8 Year
  Sex: Female

DRUGS (2)
  1. SINGULAIR [Suspect]
     Active Substance: MONTELUKAST SODIUM
     Indication: ASTHMA
  2. SINGULAIR [Suspect]
     Active Substance: MONTELUKAST SODIUM
     Indication: MULTIPLE ALLERGIES

REACTIONS (8)
  - Depressed mood [None]
  - Suicidal ideation [None]
  - Visual impairment [None]
  - Therapy cessation [None]
  - Tremor [None]
  - Anger [None]
  - Anxiety [None]
  - Gastric disorder [None]

NARRATIVE: CASE EVENT DATE: 20120601
